FAERS Safety Report 9407543 (Version 1)
Quarter: 2013Q3

REPORT INFORMATION
  Report Type: Spontaneous
  Country: US (occurrence: US)
  Receive Date: 20130718
  Receipt Date: 20130718
  Transmission Date: 20140515
  Serious: Yes (Hospitalization)
  Sender: FDA-Public Use
  Company Number: US-BAYER-2013-087018

PATIENT
  Age: 24 Year
  Sex: Female

DRUGS (4)
  1. YASMIN [Suspect]
  2. LORTAB [Concomitant]
     Dosage: 10 MG, EVERY 4 HOURS AS NEEDED
     Route: 048
  3. TYLENOL [PARACETAMOL] [Concomitant]
     Dosage: 500 MG, 2 TABLETS EVERY 6 HOURS AS NEEDED
     Route: 048
  4. SENOKOT [Concomitant]
     Route: 048

REACTIONS (1)
  - Deep vein thrombosis [None]
